FAERS Safety Report 17910510 (Version 1)
Quarter: 2020Q2

REPORT INFORMATION
  Report Type: Report from Study
  Country: None (occurrence: AT)
  Receive Date: 20200618
  Receipt Date: 20200618
  Transmission Date: 20200714
  Serious: Yes (Hospitalization)
  Sender: FDA-Public Use
  Company Number: AT-ABBVIE-20K-009-3446471-00

PATIENT
  Age: 83 Year
  Sex: Male

DRUGS (1)
  1. DUODOPA [Suspect]
     Active Substance: CARBIDOPA\LEVODOPA
     Indication: PARKINSON^S DISEASE
     Dosage: 16 H,??MD 9.6 ML,??CR DAYTIME 3.2 ML/H,??ED 1.9 ML
     Route: 050
     Dates: start: 20140225

REACTIONS (1)
  - Cardiac function test [Recovering/Resolving]

NARRATIVE: CASE EVENT DATE: 20200605
